FAERS Safety Report 17458646 (Version 1)
Quarter: 2020Q1

REPORT INFORMATION
  Report Type: Report from Study
  Country: US (occurrence: US)
  Receive Date: 20200225
  Receipt Date: 20200225
  Transmission Date: 20200409
  Serious: Yes (Hospitalization, Other)
  Sender: FDA-Public Use
  Company Number: US-PFIZER INC-2019472853

PATIENT
  Age: 81 Year
  Sex: Male

DRUGS (4)
  1. XOSPATA [Suspect]
     Active Substance: GILTERITINIB
     Dosage: 80 MG, DAILY
     Route: 048
  2. LEVAQUIN [Suspect]
     Active Substance: LEVOFLOXACIN
     Dosage: UNK
  3. VORICONAZOLE. [Suspect]
     Active Substance: VORICONAZOLE
     Dosage: UNK
  4. XOSPATA [Suspect]
     Active Substance: GILTERITINIB
     Indication: ACUTE MYELOID LEUKAEMIA
     Dosage: 120 MG, 1X/DAY
     Route: 048
     Dates: start: 20190917

REACTIONS (8)
  - Fatigue [Unknown]
  - Constipation [Unknown]
  - Wound infection [Recovering/Resolving]
  - Mouth breathing [Unknown]
  - Limb injury [Recovering/Resolving]
  - Myalgia [Unknown]
  - Oropharyngeal pain [Unknown]
  - Pyrexia [Unknown]
